FAERS Safety Report 20391773 (Version 2)
Quarter: 2022Q2

REPORT INFORMATION
  Report Type: Other
  Country: IT (occurrence: IT)
  Receive Date: 20220128
  Receipt Date: 20220524
  Transmission Date: 20220721
  Serious: Yes (Other)
  Sender: FDA-Public Use
  Company Number: IT-EMA-DD-20220117-singh_p11-114914

PATIENT
  Age: 55 Year
  Sex: Female

DRUGS (3)
  1. PRALSETINIB [Suspect]
     Active Substance: PRALSETINIB
     Indication: Lung adenocarcinoma stage III
     Dosage: OFF LABEL USE; ACTION TAKEN: TEMPORARILY DISCONTINUED AND THEN RESTARTED IN A REDUCED DOSE
     Route: 065
     Dates: start: 20200814
  2. ATEZOLIZUMAB [Suspect]
     Active Substance: ATEZOLIZUMAB
     Indication: Lung adenocarcinoma stage III
     Dosage: SECOND-LINE
     Route: 065
     Dates: start: 201909
  3. DENOSUMAB [Suspect]
     Active Substance: DENOSUMAB
     Indication: Lung adenocarcinoma stage III
     Route: 065

REACTIONS (8)
  - Neutropenia [Unknown]
  - Off label use [Unknown]
  - Disease progression [Unknown]
  - Anaemia [Unknown]
  - Hypophosphataemia [Unknown]
  - Metastases to lymph nodes [Recovering/Resolving]
  - Metastases to bone [Recovering/Resolving]
  - Metastases to liver [Recovering/Resolving]
